FAERS Safety Report 6028327-0 (Version None)
Quarter: 2009Q1

REPORT INFORMATION
  Report Type: 
  Country: None (occurrence: None)
  Receive Date: 20090106
  Receipt Date: 20090105
  Transmission Date: 20090719
  Serious: Yes (Hospitalization, Other)
  Sender: FDA-Public Use
  Company Number: DE-ABBOTT-08P-062-0494049-00

PATIENT
  Sex: Female
  Weight: 51 kg

DRUGS (4)
  1. HUMIRA [Suspect]
     Indication: DRUG USE FOR UNKNOWN INDICATION
     Route: 058
     Dates: start: 20031002, end: 20081112
  2. HUMIRA [Suspect]
     Route: 058
     Dates: start: 20090103
  3. ANTI-THROMBOSIS INJECTION [Concomitant]
     Indication: THROMBOSIS PROPHYLAXIS
     Route: 050
  4. IBUPROFEN TABLETS [Concomitant]
     Indication: RHEUMATOID ARTHRITIS

REACTIONS (1)
  - JOINT DESTRUCTION [None]
